FAERS Safety Report 12055662 (Version 1)
Quarter: 2016Q1

REPORT INFORMATION
  Report Type: Spontaneous
  Country: US (occurrence: US)
  Receive Date: 20160209
  Receipt Date: 20160209
  Transmission Date: 20160526
  Serious: No
  Sender: FDA-Public Use
  Company Number: US-LNK INTERNATIONAL, INC.-1047537

PATIENT
  Age: 73 Year
  Sex: Female

DRUGS (1)
  1. NIGHTTIME SLEEP AID (DOXYLAMINE SUCCINATE) [Suspect]
     Active Substance: DOXYLAMINE SUCCINATE
     Indication: INITIAL INSOMNIA

REACTIONS (4)
  - Fatigue [None]
  - Middle insomnia [None]
  - Somnolence [None]
  - Headache [None]
